FAERS Safety Report 9659229 (Version 1)
Quarter: 2013Q4

REPORT INFORMATION
  Report Type: Spontaneous
  Country: CA (occurrence: CA)
  Receive Date: 20131031
  Receipt Date: 20131031
  Transmission Date: 20140711
  Serious: Yes (Other)
  Sender: FDA-Public Use
  Company Number: CA-ASTRAZENECA-2013SE78800

PATIENT
  Age: 41 Year
  Sex: Female

DRUGS (1)
  1. SYMBICORT TURBUHALER [Suspect]
     Dosage: UNKNOWN FREQUENCY
     Route: 055

REACTIONS (3)
  - Condition aggravated [Unknown]
  - Dyspnoea [Unknown]
  - Drug ineffective [Unknown]
